FAERS Safety Report 6570962-5 (Version None)
Quarter: 2010Q1

REPORT INFORMATION
  Report Type: 
  Country: None (occurrence: None)
  Receive Date: 20100204
  Receipt Date: 20100122
  Transmission Date: 20100710
  Serious: Yes (Other)
  Sender: FDA-Public Use
  Company Number: PHEH2010US01660

PATIENT
  Sex: Male
  Weight: 80.726 kg

DRUGS (5)
  1. RECLAST [Suspect]
     Indication: OSTEOPOROSIS
     Dosage: 5 MG, QY
     Route: 042
     Dates: start: 20100106
  2. NORVASC [Concomitant]
     Dosage: 2.5 MG, UNK
  3. ZETIA [Concomitant]
     Dosage: 10 MG, UNK
  4. MIRAPEX [Concomitant]
     Dosage: 1.25 MG, UNK
  5. XANAX [Concomitant]
     Dosage: 0.5 MG, UNK

REACTIONS (3)
  - CELLULITIS ORBITAL [None]
  - EYELID FUNCTION DISORDER [None]
  - VISUAL IMPAIRMENT [None]
